FAERS Safety Report 7094668-1 (Version None)
Quarter: 2010Q4

REPORT INFORMATION
  Report Type: 
  Country: None (occurrence: None)
  Receive Date: 20101110
  Receipt Date: 20101026
  Transmission Date: 20110411
  Serious: Yes (Death, Other)
  Sender: FDA-Public Use
  Company Number: US-AMGEN-USASP2010001508

PATIENT

DRUGS (16)
  1. NPLATE [Suspect]
     Indication: IDIOPATHIC THROMBOCYTOPENIC PURPURA
     Dates: start: 20081114
  2. IMMU-G [Concomitant]
     Indication: IDIOPATHIC THROMBOCYTOPENIC PURPURA
     Dosage: UNK
     Dates: start: 20081013
  3. METOPROLOL [Concomitant]
  4. OMEPRAZOLE [Concomitant]
  5. SENOKOT [Concomitant]
  6. DIOVAN [Concomitant]
  7. MIRALAX [Concomitant]
  8. FERROUS SULFATE [Concomitant]
  9. CYMBALTA [Concomitant]
  10. NEURONTIN [Concomitant]
  11. LEVOTHROID [Concomitant]
  12. PREDNISONE [Concomitant]
  13. FLOMAX [Concomitant]
  14. METHADONE HCL [Concomitant]
  15. NOVOLOG [Concomitant]
  16. HYDROMORPHONE HCL [Concomitant]

REACTIONS (3)
  - EPISTAXIS [None]
  - LYMPHOMA [None]
  - PLATELET COUNT DECREASED [None]
